FAERS Safety Report 6905398-8 (Version None)
Quarter: 2010Q3

REPORT INFORMATION
  Report Type: 
  Country: None (occurrence: None)
  Receive Date: 20100804
  Receipt Date: 20100727
  Transmission Date: 20110219
  Serious: Yes (Hospitalization)
  Sender: FDA-Public Use
  Company Number: US-SANOFI-AVENTIS-2010SA045245

PATIENT
  Sex: Female
  Weight: 79.4 kg

DRUGS (19)
  1. FEXOFENADINE HCL [Suspect]
     Indication: SINUS CONGESTION
     Dosage: 1 TABLET
     Route: 048
     Dates: start: 20100201
  2. SUDAFED 12 HOUR [Suspect]
     Indication: SINUS CONGESTION
     Dosage: 2 TABLETS
     Route: 048
     Dates: start: 20100201
  3. PEGINTERFERON ALFA-2A [Suspect]
     Indication: HEPATITIS C
     Route: 058
     Dates: start: 20100528
  4. RIBAVIRIN [Suspect]
     Indication: HEPATITIS C
     Route: 048
     Dates: start: 20100528
  5. INVESTIGATIONAL DRUG [Suspect]
     Indication: HEPATITIS C
     Route: 065
     Dates: end: 20100625
  6. INVESTIGATIONAL DRUG [Suspect]
     Route: 065
     Dates: start: 20100629
  7. RANITIDINE [Concomitant]
     Dates: start: 20050101
  8. METHYLIN [Concomitant]
     Dates: start: 20100101
  9. CYMBALTA [Concomitant]
     Dates: start: 20040101
  10. ZOLPIDEM [Concomitant]
     Dates: start: 20091001
  11. SENOKOT /UNK/ [Concomitant]
     Dates: start: 20091001
  12. MORPHINE SULFATE [Concomitant]
     Dates: start: 20091001
  13. ATENOLOL [Concomitant]
     Dates: start: 20050101
  14. FLONASE [Concomitant]
     Dates: start: 20100501
  15. OXYCONTIN [Concomitant]
     Dates: start: 20000101
  16. CLINDAMYCIN [Concomitant]
     Dates: start: 20100510
  17. CORTISONE [Concomitant]
     Dates: start: 20100524
  18. DIAZEPAM [Concomitant]
     Dates: start: 19770101
  19. SEROQUEL [Concomitant]
     Indication: INSOMNIA
     Route: 048
     Dates: start: 20050101

REACTIONS (1)
  - SYNCOPE [None]
